FAERS Safety Report 11878706 (Version 1)
Quarter: 2015Q4

REPORT INFORMATION
  Report Type: Spontaneous
  Country: US (occurrence: US)
  Receive Date: 20151230
  Receipt Date: 20151230
  Transmission Date: 20160305
  Serious: Yes (Other)
  Sender: FDA-Public Use
  Company Number: US-DRREDDYS-USA/USA/15/0055045

PATIENT
  Age: 78 Year
  Sex: Male

DRUGS (5)
  1. CARVEDILOL. [Interacting]
     Active Substance: CARVEDILOL
     Indication: PRODUCT USED FOR UNKNOWN INDICATION
     Route: 065
  2. BICALUTAMIDE. [Interacting]
     Active Substance: BICALUTAMIDE
     Indication: PRODUCT USED FOR UNKNOWN INDICATION
     Route: 065
  3. DOCETAXEL. [Suspect]
     Active Substance: DOCETAXEL
     Indication: PROSTATE CANCER METASTATIC
     Route: 065
  4. DOCETAXEL. [Interacting]
     Active Substance: DOCETAXEL
     Route: 065
  5. DRONEDARONE [Interacting]
     Active Substance: DRONEDARONE
     Indication: PRODUCT USED FOR UNKNOWN INDICATION
     Route: 065

REACTIONS (4)
  - Drug interaction [Unknown]
  - Cholangitis sclerosing [Unknown]
  - Cholestasis [Unknown]
  - Liver function test abnormal [Unknown]
